FAERS Safety Report 14069287 (Version 2)
Quarter: 2017Q4

REPORT INFORMATION
  Report Type: Spontaneous
  Country: US (occurrence: US)
  Receive Date: 20171010
  Receipt Date: 20171108
  Transmission Date: 20180321
  Serious: Yes (Other)
  Sender: FDA-Public Use
  Company Number: US-BRISTOL-MYERS SQUIBB COMPANY-BMS-2017-088796

PATIENT
  Age: 35 Year
  Sex: Male
  Weight: 73.8 kg

DRUGS (2)
  1. YERVOY [Suspect]
     Active Substance: IPILIMUMAB
     Indication: MALIGNANT MELANOMA
     Dosage: 750MG
     Route: 042
     Dates: start: 201705
  2. YERVOY [Suspect]
     Active Substance: IPILIMUMAB
     Indication: PRODUCT USED FOR UNKNOWN INDICATION
     Dosage: 10 MG/KG, UNK
     Route: 042
     Dates: start: 20170713, end: 20170929

REACTIONS (3)
  - Hypophysitis [Unknown]
  - Prescribed overdose [Unknown]
  - Brain oedema [Unknown]

NARRATIVE: CASE EVENT DATE: 20170929
